FAERS Safety Report 26157265 (Version 1)
Quarter: 2025Q4

REPORT INFORMATION
  Report Type: Spontaneous
  Country: US (occurrence: None)
  Receive Date: 20251212
  Receipt Date: 20251212
  Transmission Date: 20260118
  Serious: Yes (Hospitalization)
  Sender: FDA-CTU
  Company Number: None

PATIENT
  Age: 2 Year
  Sex: Female
  Weight: 9.3 kg

DRUGS (1)
  1. ODEVIXIBAT [Suspect]
     Active Substance: ODEVIXIBAT
     Indication: Progressive familial intrahepatic cholestasis
     Dosage: 400 UG DAILY ORAL
     Route: 048
     Dates: start: 20240301

REACTIONS (5)
  - Acute respiratory failure [None]
  - Anaemia [None]
  - Rhinovirus infection [None]
  - Enterovirus infection [None]
  - Pneumonia [None]

NARRATIVE: CASE EVENT DATE: 20251117
